APPROVED DRUG PRODUCT: NORTRIPTYLINE HYDROCHLORIDE
Active Ingredient: NORTRIPTYLINE HYDROCHLORIDE
Strength: EQ 10MG BASE
Dosage Form/Route: CAPSULE;ORAL
Application: A074234 | Product #001
Applicant: RISING PHARMA HOLDINGS INC
Approved: Jul 26, 1993 | RLD: No | RS: No | Type: DISCN